FAERS Safety Report 22637555 (Version 1)
Quarter: 2023Q2

REPORT INFORMATION
  Report Type: Spontaneous
  Country: PR (occurrence: PR)
  Receive Date: 20230626
  Receipt Date: 20230626
  Transmission Date: 20230721
  Serious: Yes (Hospitalization, Other)
  Sender: FDA-Public Use
  Company Number: PR-Vifor (International) Inc.-VIT-2023-04569

PATIENT
  Age: 70 Year
  Sex: Female
  Weight: 78.8 kg

DRUGS (1)
  1. MIRCERA [Suspect]
     Active Substance: METHOXY POLYETHYLENE GLYCOL-EPOETIN BETA
     Indication: Anaemia
     Route: 040
     Dates: start: 20230513, end: 20230610

REACTIONS (6)
  - Drug hypersensitivity [Unknown]
  - Dizziness [Recovered/Resolved]
  - Nausea [Unknown]
  - Dyspnoea [Unknown]
  - Vision blurred [Unknown]
  - Hypotension [Unknown]

NARRATIVE: CASE EVENT DATE: 20230513
